FAERS Safety Report 7475255-X (Version None)
Quarter: 2011Q2

REPORT INFORMATION
  Report Type: 
  Country: None (occurrence: None)
  Receive Date: 20110512
  Receipt Date: 20110428
  Transmission Date: 20111010
  Serious: No
  Sender: FDA-Public Use
  Company Number: US-B.I. PHARMACEUTICALS,INC./RIDGEFIELD-2011-BP-12065BP

PATIENT
  Sex: Male

DRUGS (3)
  1. ZYRTEC [Concomitant]
     Indication: MULTIPLE ALLERGIES
     Dates: start: 20090101
  2. SINGULAIR [Concomitant]
     Indication: MULTIPLE ALLERGIES
     Dates: start: 20090101
  3. ZANTAC 150 [Suspect]
     Indication: MULTIPLE ALLERGIES
     Dosage: 150 MG
     Route: 048
     Dates: start: 20100401

REACTIONS (1)
  - ABDOMINAL PAIN UPPER [None]
